FAERS Safety Report 24400121 (Version 1)
Quarter: 2024Q4

REPORT INFORMATION
  Report Type: Spontaneous
  Country: US (occurrence: US)
  Receive Date: 20241005
  Receipt Date: 20241005
  Transmission Date: 20250115
  Serious: No
  Sender: ABBVIE
  Company Number: US-ABBVIE-5943314

PATIENT
  Age: 40 Year
  Sex: Female

DRUGS (1)
  1. SKYRIZI [Suspect]
     Active Substance: RISANKIZUMAB-RZAA
     Indication: Guttate psoriasis
     Dosage: FORM STRENGTH: 150 MG?UNKNOWN?RELATED TO PRODUCT COMPLAINT: TRUE
     Route: 058

REACTIONS (4)
  - Rash [Unknown]
  - Off label use [Unknown]
  - Injection site pain [Unknown]
  - Device issue [Not Recovered/Not Resolved]

NARRATIVE: CASE EVENT DATE: 20240701
